FAERS Safety Report 18762731 (Version 1)
Quarter: 2021Q1

REPORT INFORMATION
  Report Type: Spontaneous
  Country: CN (occurrence: CN)
  Receive Date: 20210120
  Receipt Date: 20210120
  Transmission Date: 20210419
  Serious: Yes (Other)
  Sender: FDA-Public Use
  Company Number: ALC2020CN009720

PATIENT
  Age: 68 Year
  Sex: Female

DRUGS (2)
  1. SODIUM CHLORIDE. [Concomitant]
     Active Substance: SODIUM CHLORIDE
     Indication: DIAGNOSTIC PROCEDURE
     Dosage: 250.000 ML, QD
     Route: 041
     Dates: start: 20201122, end: 20201122
  2. FLUORESCITE [Suspect]
     Active Substance: FLUORESCEIN SODIUM
     Indication: SKIN TEST
     Dosage: 1.000 MG, QD
     Route: 023
     Dates: start: 20201122, end: 20201122

REACTIONS (1)
  - Anaphylactic shock [Recovering/Resolving]

NARRATIVE: CASE EVENT DATE: 20201122
